FAERS Safety Report 5032750-0 (Version None)
Quarter: 2006Q2

REPORT INFORMATION
  Report Type: 
  Country: None (occurrence: None)
  Receive Date: 20060622
  Receipt Date: 20060616
  Transmission Date: 20061013
  Serious: Yes (Hospitalization)
  Sender: FDA-Public Use
  Company Number: US-BRISTOL-MYERS SQUIBB COMPANY-13415278

PATIENT
  Sex: Female
  Weight: 36 kg

DRUGS (5)
  1. CARBIDOPA AND LEVODOPA [Suspect]
     Indication: PARKINSON'S DISEASE
     Dosage: DOSAGE: 25MG/100MG
     Route: 048
  2. COMTAN [Concomitant]
  3. OCUPRESS [Concomitant]
  4. LUMIGAN [Concomitant]
  5. B12 [Concomitant]
     Route: 060

REACTIONS (3)
  - BLOOD SODIUM DECREASED [None]
  - DRUG INEFFECTIVE [None]
  - HALLUCINATION [None]
